FAERS Safety Report 8169152-4 (Version None)
Quarter: 2012Q1

REPORT INFORMATION
  Report Type: 
  Country: None (occurrence: None)
  Receive Date: 20120227
  Receipt Date: 20120215
  Transmission Date: 20120608
  Serious: Yes (Other)
  Sender: FDA-Public Use
  Company Number: US-RB-036051-12

PATIENT
  Sex: Male
  Weight: 3.6 kg

DRUGS (3)
  1. SUBUTEX [Suspect]
     Indication: DRUG DEPENDENCE
     Route: 064
     Dates: start: 20110701, end: 20111101
  2. SUBUTEX [Suspect]
     Dosage: TAPERED DOSES
     Route: 064
     Dates: start: 20111101, end: 20111211
  3. SUBOXONE [Suspect]
     Indication: DRUG DEPENDENCE
     Route: 064
     Dates: start: 20100101, end: 20110701

REACTIONS (5)
  - HYPOPHAGIA [None]
  - PREMATURE BABY [None]
  - LOW BIRTH WEIGHT BABY [None]
  - FOETAL EXPOSURE DURING PREGNANCY [None]
  - TREMOR NEONATAL [None]
